FAERS Safety Report 4906621-1 (Version None)
Quarter: 2006Q1

REPORT INFORMATION
  Report Type: 
  Country: None (occurrence: None)
  Receive Date: 20060209
  Receipt Date: 20060202
  Transmission Date: 20060701
  Serious: Yes (Death)
  Sender: FDA-Public Use
  Company Number: JP-JPN-A200600457

PATIENT
  Age: 16 Year
  Sex: Male

DRUGS (3)
  1. PAXIL [Suspect]
     Indication: DEPRESSION
     Dosage: 20MG PER DAY
     Route: 048
  2. DEPAS [Concomitant]
     Indication: DEPRESSION
     Route: 048
  3. MYSLEE [Concomitant]
     Indication: INSOMNIA
     Route: 048

REACTIONS (3)
  - COMPLETED SUICIDE [None]
  - DEPRESSION [None]
  - INSOMNIA [None]
